FAERS Safety Report 17172214 (Version 1)
Quarter: 2019Q4

REPORT INFORMATION
  Report Type: Spontaneous
  Country: TN (occurrence: TN)
  Receive Date: 20191219
  Receipt Date: 20191219
  Transmission Date: 20200122
  Serious: Yes (Other)
  Sender: FDA-Public Use
  Company Number: NVSC2019TN073641

PATIENT
  Age: 64 Year
  Sex: Female

DRUGS (1)
  1. PREDNISONE. [Suspect]
     Active Substance: PREDNISONE
     Indication: ERDHEIM-CHESTER DISEASE
     Dosage: 1 MG/KG, QD
     Route: 065

REACTIONS (2)
  - Product use in unapproved indication [Unknown]
  - Diabetes insipidus [Recovering/Resolving]
